FAERS Safety Report 9522476 (Version 1)
Quarter: 2013Q3

REPORT INFORMATION
  Report Type: Spontaneous
  Country: CA (occurrence: None)
  Receive Date: 20130911
  Receipt Date: 20130911
  Transmission Date: 20140515
  Serious: No
  Sender: FDA-Public Use
  Company Number: AECAN201200469

PATIENT
  Age: 31 Year
  Sex: Female

DRUGS (3)
  1. GAMUNEX (IMMUNE GLOBULIN IV (HUMAN), CAPRYLATE/CHROMATOGRAPHY PURIFIED) (10 PCT) [Suspect]
     Indication: ECZEMA
     Route: 042
     Dates: start: 20120925, end: 20120925
  2. GAMUNEX (IMMUNE GLOBULIN IV (HUMAN), CAPRYLATE/CHROMATOGRAPHY PURIFIED) (10 PCT) [Suspect]
     Indication: PSORIASIS
     Route: 042
     Dates: start: 20120925, end: 20120925
  3. GAMUNEX (IMMUNE GLOBULIN IV (HUMAN), CAPRYLATE/CHROMATOGRAPHY PURIFIED) (10 PCT) [Suspect]
     Indication: URTICARIA
     Route: 042
     Dates: start: 20120925, end: 20120925

REACTIONS (4)
  - Urticaria [None]
  - Rash [None]
  - Hypertension [None]
  - Hypersensitivity [None]
